FAERS Safety Report 24555230 (Version 2)
Quarter: 2024Q4

REPORT INFORMATION
  Report Type: Spontaneous
  Country: TW (occurrence: TW)
  Receive Date: 20241028
  Receipt Date: 20241104
  Transmission Date: 20250114
  Serious: Yes (Other)
  Sender: ASTELLAS
  Company Number: TW-ASTELLAS-2024-AER-012602

PATIENT
  Sex: Male

DRUGS (4)
  1. XTANDI [Suspect]
     Active Substance: ENZALUTAMIDE
     Indication: Prostate cancer
     Dosage: 160MG (4 PILLS) ONCE A DAY
     Route: 048
     Dates: start: 202301
  2. XTANDI [Suspect]
     Active Substance: ENZALUTAMIDE
     Dosage: 80MG (2 PILLS) ONCE A DAY
     Route: 048
     Dates: start: 202312
  3. XTANDI [Suspect]
     Active Substance: ENZALUTAMIDE
     Dosage: DOSE WAS REDUCED TO 40MG ONCE A DAY
     Route: 048
     Dates: start: 202310
  4. LEUPROLIDE ACETATE [Concomitant]
     Active Substance: LEUPROLIDE ACETATE
     Indication: Product used for unknown indication
     Route: 042

REACTIONS (1)
  - Hepatitis C [Recovered/Resolved]

NARRATIVE: CASE EVENT DATE: 20231001
